FAERS Safety Report 20319934 (Version 1)
Quarter: 2022Q1

REPORT INFORMATION
  Report Type: Spontaneous
  Country: CN (occurrence: CN)
  Receive Date: 20220111
  Receipt Date: 20220111
  Transmission Date: 20220423
  Serious: Yes (Other)
  Sender: FDA-Public Use
  Company Number: CN-PFIZER INC-202101872170

PATIENT
  Age: 43 Year
  Sex: Male
  Weight: 169 kg

DRUGS (5)
  1. IRINOTECAN [Suspect]
     Active Substance: IRINOTECAN
     Indication: Rectal cancer
     Dosage: 0.2 G, 1X/DAY
     Route: 041
     Dates: start: 20211116, end: 20211116
  2. IRINOTECAN [Suspect]
     Active Substance: IRINOTECAN
     Dosage: 240 MG, 1X/DAY
     Route: 041
     Dates: start: 20211116, end: 20211116
  3. OXALIPLATIN [Suspect]
     Active Substance: OXALIPLATIN
     Indication: Rectal cancer
     Dosage: 150 MG, 1X/DAY
     Route: 041
     Dates: start: 20211116, end: 20211116
  4. SODIUM CHLORIDE [Concomitant]
     Active Substance: SODIUM CHLORIDE
     Indication: Rectal cancer
     Dosage: 250 ML, 1X/DAY
     Route: 041
     Dates: start: 20211116, end: 20211116
  5. DEXTROSE [Concomitant]
     Active Substance: DEXTROSE
     Indication: Rectal cancer
     Dosage: 500 ML, 1X/DAY
     Route: 041
     Dates: start: 20211116, end: 20211116

REACTIONS (3)
  - Cytopenia [Recovered/Resolved]
  - White blood cell count decreased [Recovered/Resolved]
  - Neutrophil count decreased [Recovered/Resolved]

NARRATIVE: CASE EVENT DATE: 20211201
